FAERS Safety Report 25926228 (Version 1)
Quarter: 2025Q4

REPORT INFORMATION
  Report Type: Spontaneous
  Country: US (occurrence: None)
  Receive Date: 20251014
  Receipt Date: 20251014
  Transmission Date: 20260117
  Serious: Yes (Other)
  Sender: FDA-CTU
  Company Number: None

PATIENT
  Age: 26 Year
  Sex: Male
  Weight: 101.25 kg

DRUGS (3)
  1. XOLAIR [Suspect]
     Active Substance: OMALIZUMAB
     Indication: Breast cancer
     Dates: start: 20250731, end: 20251014
  2. QUETIAPINE [Suspect]
     Active Substance: QUETIAPINE
  3. LAMICTAL [Suspect]
     Active Substance: LAMOTRIGINE

REACTIONS (2)
  - Mania [None]
  - Therapy interrupted [None]

NARRATIVE: CASE EVENT DATE: 20251014
